FAERS Safety Report 5264447-6 (Version None)
Quarter: 2007Q1

REPORT INFORMATION
  Report Type: 
  Country: None (occurrence: None)
  Receive Date: 20070309
  Receipt Date: 20070302
  Transmission Date: 20070707
  Serious: Yes (Other)
  Sender: FDA-Public Use
  Company Number: 237645

PATIENT
  Sex: Female

DRUGS (7)
  1. XOLAIR [Suspect]
     Indication: ASTHMA
     Dosage: 150 MG, Q2W, SUBCUTANEOUS
     Route: 058
     Dates: start: 20040601
  2. ADVAIR DISKUS 100/50 [Concomitant]
  3. FLOVENT [Concomitant]
  4. MEDROL [Concomitant]
  5. PROVENTIL (ALBUTEROL/ALBUTEROL SULFATE) [Concomitant]
  6. AMBIEN [Concomitant]
  7. NEURONTIN [Concomitant]

REACTIONS (7)
  - CONTUSION [None]
  - EAR PAIN [None]
  - FATIGUE [None]
  - HEADACHE [None]
  - MIDDLE EAR EFFUSION [None]
  - SLUGGISHNESS [None]
  - TOE OPERATION [None]
